FAERS Safety Report 24726866 (Version 1)
Quarter: 2024Q4

REPORT INFORMATION
  Report Type: Spontaneous
  Country: GB (occurrence: GB)
  Receive Date: 20241212
  Receipt Date: 20241212
  Transmission Date: 20250115
  Serious: Yes (Other)
  Sender: PFIZER
  Company Number: None

PATIENT
  Age: 25 Year
  Sex: Female

DRUGS (1)
  1. FLUCONAZOLE [Suspect]
     Active Substance: FLUCONAZOLE
     Dosage: UNK

REACTIONS (4)
  - Eye pruritus [Unknown]
  - Eye swelling [Recovered/Resolved]
  - Eye irritation [Unknown]
  - Periorbital swelling [Unknown]
